FAERS Safety Report 10267314 (Version 2)
Quarter: 2014Q3

REPORT INFORMATION
  Report Type: Spontaneous
  Country: US (occurrence: None)
  Receive Date: 20140625
  Receipt Date: 20140806
  Transmission Date: 20150326
  Serious: Yes (Hospitalization, Other)
  Sender: FDA-Public Use
  Company Number: AUR-APL-2014-06703

PATIENT
  Age: 42 Year
  Sex: Female

DRUGS (4)
  1. SUMATRIPTAN INJECTION USP 6 MG/0.5 ML (SUMATRIPTAN) INJECTION, 6/0.5MG/ML [Suspect]
     Active Substance: SUMATRIPTAN
     Indication: MIGRAINE
     Route: 058
  2. HYDROMORPHONE [Concomitant]
     Active Substance: HYDROMORPHONE
  3. MORPHINE [Concomitant]
     Active Substance: MORPHINE
  4. HYDROCODONE BITARTRATE AND ACETAMINOPHEN (HYDROCODONE BITARTRATE, PARACETAMOL) [Concomitant]

REACTIONS (18)
  - Femoral pulse abnormal [None]
  - Muscle rigidity [None]
  - Atrioventricular block second degree [None]
  - Drooling [None]
  - Ventricular fibrillation [None]
  - Dysarthria [None]
  - Muscle contracture [None]
  - Atrioventricular block complete [None]
  - Supraventricular tachycardia [None]
  - Left ventricular hypertrophy [None]
  - Medication error [None]
  - Bradycardia [None]
  - Left atrial dilatation [None]
  - Cardiac arrest [None]
  - Lethargy [None]
  - Torsade de pointes [None]
  - Torticollis [None]
  - Grip strength decreased [None]
